FAERS Safety Report 19953039 (Version 2)
Quarter: 2021Q4

REPORT INFORMATION
  Report Type: Spontaneous
  Country: US (occurrence: US)
  Receive Date: 20211014
  Receipt Date: 20211123
  Transmission Date: 20220303
  Serious: No
  Sender: FDA-Public Use
  Company Number: US-CELGENE-USA-20211002121

PATIENT
  Sex: Female
  Weight: 64.468 kg

DRUGS (1)
  1. REVLIMID [Suspect]
     Active Substance: LENALIDOMIDE
     Indication: Plasma cell myeloma
     Dosage: 25 MILLIGRAM
     Route: 048
     Dates: start: 20210430

REACTIONS (5)
  - Diarrhoea [Recovering/Resolving]
  - Increased tendency to bruise [Recovering/Resolving]
  - Insomnia [Unknown]
  - Hypoaesthesia [Unknown]
  - Ear infection [Unknown]

NARRATIVE: CASE EVENT DATE: 20210101
